FAERS Safety Report 9367710 (Version 1)
Quarter: 2013Q2

REPORT INFORMATION
  Report Type: Spontaneous
  Country: US (occurrence: US)
  Receive Date: 20130625
  Receipt Date: 20130625
  Transmission Date: 20140414
  Serious: No
  Sender: FDA-Public Use
  Company Number: US-ASTELLAS-2012US007766

PATIENT
  Sex: Female
  Weight: 107 kg

DRUGS (5)
  1. VESICARE [Suspect]
     Indication: PRODUCT USED FOR UNKNOWN INDICATION
     Dosage: UNK
     Route: 048
     Dates: start: 201208
  2. PRILOSEC                           /00661201/ [Concomitant]
     Indication: GASTROOESOPHAGEAL REFLUX DISEASE
     Dosage: UNK
     Route: 065
  3. ZANTAC [Concomitant]
     Indication: DYSPEPSIA
     Dosage: UNK
     Route: 065
  4. LEXAPRO [Concomitant]
     Indication: NERVOUSNESS
     Dosage: UNK
     Route: 065
  5. THYROID THERAPY [Concomitant]
     Indication: THYROID DISORDER
     Dosage: UNK
     Route: 065

REACTIONS (1)
  - Dry mouth [Unknown]
